FAERS Safety Report 14419423 (Version 1)
Quarter: 2018Q1

REPORT INFORMATION
  Report Type: Spontaneous
  Country: JP (occurrence: JP)
  Receive Date: 20180122
  Receipt Date: 20180122
  Transmission Date: 20180509
  Serious: Yes (Death)
  Sender: FDA-Public Use
  Company Number: JP-CELGENEUS-JPN-20171104341

PATIENT
  Age: 73 Year
  Sex: Male

DRUGS (5)
  1. KYPROLIS [Concomitant]
     Active Substance: CARFILZOMIB
     Indication: PLASMA CELL MYELOMA
     Dosage: UNKNOWN
     Route: 065
     Dates: start: 20160926, end: 20170731
  2. DEXAMETHASONE. [Suspect]
     Active Substance: DEXAMETHASONE
     Indication: PLASMA CELL MYELOMA
     Dosage: UNKNOWN
     Route: 048
     Dates: end: 2017
  3. ELOTUZUMAB. [Concomitant]
     Active Substance: ELOTUZUMAB
     Indication: PLASMA CELL MYELOMA
     Dosage: UNKNOWN
     Route: 065
     Dates: start: 20171120, end: 20171201
  4. REVLIMID [Suspect]
     Active Substance: LENALIDOMIDE
     Dosage: 5 MILLIGRAM
     Route: 048
     Dates: start: 20171120, end: 20171201
  5. REVLIMID [Suspect]
     Active Substance: LENALIDOMIDE
     Indication: PLASMA CELL MYELOMA
     Dosage: 5 MILLIGRAM
     Route: 048
     Dates: start: 20160926, end: 20170731

REACTIONS (3)
  - Stomatitis [Unknown]
  - Plasma cell myeloma [Fatal]
  - Plasma cell myeloma [Unknown]

NARRATIVE: CASE EVENT DATE: 2017
